FAERS Safety Report 13699773 (Version 2)
Quarter: 2017Q3

REPORT INFORMATION
  Report Type: Report from Study
  Country: US (occurrence: US)
  Receive Date: 20170629
  Receipt Date: 20170717
  Transmission Date: 20171127
  Serious: Yes (Disabling)
  Sender: FDA-Public Use
  Company Number: US-ROCHE-1956860

PATIENT
  Sex: Female
  Weight: 63 kg

DRUGS (4)
  1. ITRACONAZOLE. [Concomitant]
     Active Substance: ITRACONAZOLE
  2. SPIRIVA [Concomitant]
     Active Substance: TIOTROPIUM BROMIDE MONOHYDRATE
  3. OXYGEN. [Concomitant]
     Active Substance: OXYGEN
  4. XOLAIR [Suspect]
     Active Substance: OMALIZUMAB
     Indication: BRONCHOPULMONARY ASPERGILLOSIS ALLERGIC
     Dosage: ONGOING: UNKNOWN
     Route: 058

REACTIONS (2)
  - Off label use [Unknown]
  - Disability [Not Recovered/Not Resolved]
